FAERS Safety Report 4736538-7 (Version None)
Quarter: 2005Q3

REPORT INFORMATION
  Report Type: 
  Country: None (occurrence: None)
  Receive Date: 20050802
  Receipt Date: 20050721
  Transmission Date: 20060218
  Serious: Yes (Death)
  Sender: FDA-Public Use
  Company Number: 2005105462

PATIENT
  Age: 75 Year
  Sex: Female

DRUGS (4)
  1. ZITHROMAX [Suspect]
     Indication: PNEUMONIA
     Dosage: INTRAVENOUS
     Route: 042
     Dates: start: 20050718
  2. ASPIRIN [Concomitant]
  3. NITRO PATCH (GLYCERYL TRINITRATE) [Concomitant]
  4. DIGOXIN [Concomitant]

REACTIONS (3)
  - CARDIAC ARREST [None]
  - CARDIAC DISORDER [None]
  - HYPOTENSION [None]
